FAERS Safety Report 7427592-2 (Version None)
Quarter: 2011Q2

REPORT INFORMATION
  Report Type: 
  Country: None (occurrence: None)
  Receive Date: 20110420
  Receipt Date: 20110407
  Transmission Date: 20111010
  Serious: Yes (Hospitalization)
  Sender: FDA-Public Use
  Company Number: FR-MYLANLABS-2011S1007491

PATIENT
  Age: 77 Year
  Sex: Female

DRUGS (3)
  1. VANCOMYCIN [Suspect]
     Indication: STAPHYLOCOCCAL BACTERAEMIA
     Route: 042
  2. TRIMETAZIDINE [Concomitant]
     Indication: CORONARY ARTERY DISEASE
     Route: 065
  3. PREDNISONE [Concomitant]
     Indication: POLYMYALGIA RHEUMATICA
     Dosage: 3 MG/DAY
     Route: 065

REACTIONS (1)
  - LINEAR IGA DISEASE [None]
